FAERS Safety Report 13536111 (Version 2)
Quarter: 2017Q2

REPORT INFORMATION
  Report Type: Spontaneous
  Country: US (occurrence: US)
  Receive Date: 20170511
  Receipt Date: 20170627
  Transmission Date: 20170830
  Serious: Yes (Other)
  Sender: FDA-Public Use
  Company Number: US-PFIZER INC-2017203505

PATIENT
  Age: 71 Year

DRUGS (2)
  1. IBRANCE [Suspect]
     Active Substance: PALBOCICLIB
     Dosage: 75 MG, CYCLIC (QD ON DAYS 1-21 WITH ONE WEEK OFF AND THEN REPEAT AGAIN)
     Route: 048
  2. IBRANCE [Suspect]
     Active Substance: PALBOCICLIB
     Dosage: 100 MG, CYCLIC (DAYS 1-21, OFF 7 DAYS THEN REPEAT CYCLE/WITH ONE WEEK OFF AND THEN REPEAT AGAIN)
     Route: 048

REACTIONS (1)
  - Neutropenia [Unknown]
